FAERS Safety Report 10073842 (Version 4)
Quarter: 2020Q3

REPORT INFORMATION
  Report Type: Spontaneous
  Country: GB (occurrence: GB)
  Receive Date: 20140413
  Receipt Date: 20200915
  Transmission Date: 20201102
  Serious: Yes (Other)
  Sender: FDA-Public Use
  Company Number: GB-MYLANLABS-2014S1007411

PATIENT
  Sex: Female

DRUGS (7)
  1. METFORMIN [Interacting]
     Active Substance: METFORMIN HYDROCHLORIDE
     Indication: DIABETES MELLITUS
     Dosage: UNK
  2. GENTAMICIN. [Suspect]
     Active Substance: GENTAMICIN
     Indication: PRODUCT USED FOR UNKNOWN INDICATION
     Dosage: UNK
  3. APIXABAN [Interacting]
     Active Substance: APIXABAN
     Indication: KNEE ARTHROPLASTY
     Dosage: UNK
  4. FLUCLOXACILLIN [Suspect]
     Active Substance: FLUCLOXACILLIN
     Indication: PRODUCT USED FOR UNKNOWN INDICATION
     Dosage: UNK
  5. APIXABAN [Interacting]
     Active Substance: APIXABAN
     Indication: HIP ARTHROPLASTY
  6. IBUPROFEN. [Interacting]
     Active Substance: IBUPROFEN
     Indication: HIP ARTHROPLASTY
  7. IBUPROFEN. [Suspect]
     Active Substance: IBUPROFEN
     Indication: KNEE ARTHROPLASTY
     Dosage: UNK

REACTIONS (4)
  - Renal failure [Unknown]
  - Creatinine renal clearance abnormal [Unknown]
  - Blood pressure decreased [Unknown]
  - Drug interaction [Unknown]
